FAERS Safety Report 14424443 (Version 1)
Quarter: 2018Q1

REPORT INFORMATION
  Report Type: Spontaneous
  Country: IT (occurrence: IT)
  Receive Date: 20180123
  Receipt Date: 20180123
  Transmission Date: 20180509
  Serious: Yes (Life-Threatening)
  Sender: FDA-Public Use
  Company Number: IT-BAYER-2018-009007

PATIENT
  Age: 39 Year
  Sex: Female

DRUGS (2)
  1. LUTENYL [Suspect]
     Active Substance: NOMEGESTROL ACETATE
     Dosage: 1 DF, UNK
     Route: 048
  2. MIRENA [Suspect]
     Active Substance: LEVONORGESTREL
     Indication: MENORRHAGIA
     Dosage: 20 MCG/24HR, CONT
     Route: 015
     Dates: start: 20120131, end: 20160219

REACTIONS (1)
  - Breast cancer in situ [Unknown]

NARRATIVE: CASE EVENT DATE: 20170719
